FAERS Safety Report 10329120 (Version 1)
Quarter: 2014Q3

REPORT INFORMATION
  Report Type: Spontaneous
  Country: IT (occurrence: None)
  Receive Date: 20140717
  Receipt Date: 20140717
  Transmission Date: 20150326
  Serious: Yes (Hospitalization)
  Sender: FDA-Public Use
  Company Number: AUR-APL-2014-07483

PATIENT
  Sex: Female

DRUGS (1)
  1. RAMIPRIL (RAMIPRIL) UNKNOWN, UNKNOWN [Suspect]
     Active Substance: RAMIPRIL
     Indication: PRODUCT USED FOR UNKNOWN INDICATION

REACTIONS (3)
  - Cerebral haemorrhage [None]
  - Femur fracture [None]
  - Syncope [None]

NARRATIVE: CASE EVENT DATE: 20140418
